FAERS Safety Report 6552459-1 (Version None)
Quarter: 2010Q1

REPORT INFORMATION
  Report Type: 
  Country: None (occurrence: None)
  Receive Date: 20100126
  Receipt Date: 20100118
  Transmission Date: 20100710
  Serious: Yes (Other)
  Sender: FDA-Public Use
  Company Number: PHHY2010US03341

PATIENT
  Sex: Female

DRUGS (3)
  1. SANDIMMUNE [Suspect]
     Indication: RENAL TRANSPLANT
     Dosage: 25 MG, Q12H
     Route: 048
     Dates: start: 19940101
  2. PREDNISONE [Concomitant]
  3. FUROSEMIDE [Concomitant]

REACTIONS (3)
  - BENIGN BONE NEOPLASM [None]
  - CARDIAC DISORDER [None]
  - CORONARY ARTERY BYPASS [None]
